FAERS Safety Report 10582544 (Version 1)
Quarter: 2014Q4

REPORT INFORMATION
  Report Type: Spontaneous
  Country: US (occurrence: US)
  Receive Date: 20141113
  Receipt Date: 20141113
  Transmission Date: 20150529
  Serious: Yes (Other)
  Sender: FDA-Public Use
  Company Number: US-BAUSCH-BL-2014-007879

PATIENT
  Age: 49 Year
  Sex: Male

DRUGS (1)
  1. XENAZINE [Suspect]
     Active Substance: TETRABENAZINE
     Indication: HUNTINGTON^S DISEASE
     Route: 048
     Dates: start: 20141008, end: 20141023

REACTIONS (3)
  - Feeling abnormal [Unknown]
  - Incoherent [Unknown]
  - Road traffic accident [Unknown]

NARRATIVE: CASE EVENT DATE: 201410
